FAERS Safety Report 9286827 (Version 1)
Quarter: 2013Q2

REPORT INFORMATION
  Report Type: Spontaneous
  Country: GB (occurrence: None)
  Receive Date: 20130509
  Receipt Date: 20130509
  Transmission Date: 20140414
  Serious: Yes (Hospitalization)
  Sender: FDA-Public Use
  Company Number: SYM-2013-03593

PATIENT
  Age: 65 Year
  Sex: Male

DRUGS (12)
  1. 5 FU [Suspect]
     Indication: COLORECTAL CANCER METASTATIC
     Route: 040
     Dates: start: 20121001, end: 20121001
  2. AFLIBERCEPT [Suspect]
     Indication: COLORECTAL CANCER METASTATIC
     Route: 041
     Dates: start: 20121001, end: 20121001
  3. IRINOTECAN [Suspect]
     Indication: COLORECTAL CANCER METASTATIC
     Route: 041
     Dates: start: 20121001, end: 20121001
  4. LEUCOVORIN [Suspect]
     Indication: COLORECTAL CANCER METASTATIC
     Route: 041
     Dates: start: 20121001, end: 20121001
  5. CALCIUM CHANNEL BLOCKERS (CALCIUM CHANNEL BLOCKERS) [Concomitant]
  6. LOPERAMIDE (LOPERAMIDE) (LOPERAMIDE) [Concomitant]
  7. VITAMIN B12 (CYANHOCOBALAMIN) (CYANOCOBALAMIN) [Concomitant]
  8. ANTIBIOTICS (ANTIBIOTICS) [Concomitant]
  9. LACTULOSE (LACTULOSE) (LACTULOSE) [Concomitant]
  10. STREPSILS (STREPSILS/00200801/) (AMYLMETACRESOL, DICHLOROBENZYL ALCOHOL) [Concomitant]
  11. DIFFLAM (BENZYDAMINE HYDROCHLORIDE) (BENZYDAMINE HYDROCHLORIDE) [Concomitant]
  12. LEVOFLOXACIN (LEVOFLOXACIN) (LEVOFLOXACIN) [Concomitant]

REACTIONS (1)
  - Neutropenia [None]
